FAERS Safety Report 9596008 (Version 1)
Quarter: 2013Q4

REPORT INFORMATION
  Report Type: Spontaneous
  Country: CH (occurrence: CH)
  Receive Date: 20131004
  Receipt Date: 20131004
  Transmission Date: 20140711
  Serious: Yes (Other)
  Sender: FDA-Public Use
  Company Number: CH-ROXANE LABORATORIES, INC.-2013-RO-01617RO

PATIENT
  Age: 48 Year
  Sex: Female

DRUGS (7)
  1. LITHIUM CARBONATE [Suspect]
     Indication: BIPOLAR DISORDER
  2. DULOXETINE [Suspect]
     Indication: DEPRESSION
     Dosage: 90 MG
  3. DULOXETINE [Suspect]
     Dosage: 60 MG
  4. PROPOFOL [Suspect]
     Indication: ELECTROCONVULSIVE THERAPY
  5. SUCCINYLCHOLINE [Suspect]
     Indication: HYPOTONIA
  6. ROCURONIUM [Suspect]
     Indication: HYPOTONIA
     Dosage: 80 MG
  7. SUGAMMADEX [Suspect]
     Indication: NEUROMUSCULAR BLOCKADE REVERSAL
     Dosage: 500 MG

REACTIONS (4)
  - Ventricular tachycardia [Recovered/Resolved]
  - Anxiety [Recovered/Resolved]
  - Agitation [Recovered/Resolved]
  - Blood pressure increased [Unknown]
